FAERS Safety Report 23917423 (Version 1)
Quarter: 2024Q2

REPORT INFORMATION
  Report Type: Report from Study
  Country: IL (occurrence: IL)
  Receive Date: 20240529
  Receipt Date: 20240529
  Transmission Date: 20240716
  Serious: Yes (Hospitalization)
  Sender: FDA-Public Use
  Company Number: IL-ABBVIE-5774089

PATIENT
  Sex: Female

DRUGS (2)
  1. CARBIDOPA\LEVODOPA [Suspect]
     Active Substance: CARBIDOPA\LEVODOPA
     Indication: Parkinson^s disease
     Dosage: MORNING DOSE 8.0ML, CONTINUOUS DOSE 2.0 ML/HOUR, EXTRA DOSE 0.1 ML
     Route: 050
  2. CARBIDOPA\LEVODOPA [Suspect]
     Active Substance: CARBIDOPA\LEVODOPA
     Route: 050
     Dates: start: 20190806

REACTIONS (10)
  - Head injury [Unknown]
  - Hallucination [Unknown]
  - Incorrect route of product administration [Unknown]
  - Device occlusion [Unknown]
  - Confusional state [Unknown]
  - Suspiciousness [Unknown]
  - Stoma site irritation [Unknown]
  - Seizure [Unknown]
  - Aggression [Unknown]
  - Stoma site discharge [Unknown]

NARRATIVE: CASE EVENT DATE: 20240101
